FAERS Safety Report 10376579 (Version 1)
Quarter: 2014Q3

REPORT INFORMATION
  Report Type: Spontaneous
  Country: US (occurrence: None)
  Receive Date: 20140807
  Receipt Date: 20140807
  Transmission Date: 20150326
  Serious: Yes (Other)
  Sender: FDA-Public Use
  Company Number: 2014-002283

PATIENT
  Age: 32 Year
  Sex: Female

DRUGS (1)
  1. LO LOESTRIN FE [Suspect]
     Active Substance: ETHINYL ESTRADIOL\NORETHINDRONE ACETATE
     Indication: CONTRACEPTION
     Route: 048
     Dates: start: 201405

REACTIONS (4)
  - Drug ineffective [None]
  - Pregnancy on oral contraceptive [None]
  - Maternal exposure timing unspecified [None]
  - Abortion spontaneous [None]

NARRATIVE: CASE EVENT DATE: 2014
